FAERS Safety Report 7465829-4 (Version None)
Quarter: 2011Q2

REPORT INFORMATION
  Report Type: 
  Country: None (occurrence: None)
  Receive Date: 20110509
  Receipt Date: 20100421
  Transmission Date: 20111010
  Serious: No
  Sender: FDA-Public Use
  Company Number: US-ALEXION-A201000289

PATIENT
  Sex: Female
  Weight: 62.585 kg

DRUGS (5)
  1. FOLIC ACID [Concomitant]
     Dosage: 1 MG, QD
     Route: 048
  2. ASPIRIN [Concomitant]
     Dosage: 81 MG, QD
     Route: 048
  3. SOLIRIS [Suspect]
     Indication: PAROXYSMAL NOCTURNAL HAEMOGLOBINURIA
     Dosage: 600 MG, QW
     Route: 042
     Dates: start: 20091014, end: 20091101
  4. SOLIRIS [Suspect]
     Dosage: 900 MG, Q2W
     Route: 042
     Dates: start: 20091111
  5. IRON [Concomitant]
     Dosage: 325 MG, QD
     Route: 048

REACTIONS (2)
  - THERMAL BURN [None]
  - MORPHOEA [None]
